FAERS Safety Report 5679103-X (Version None)
Quarter: 2008Q1

REPORT INFORMATION
  Report Type: 
  Country: None (occurrence: None)
  Receive Date: 20080324
  Receipt Date: 20080311
  Transmission Date: 20080703
  Serious: Yes (Hospitalization)
  Sender: FDA-Public Use
  Company Number: 2008BI006849

PATIENT
  Age: 56 Year
  Sex: Male
  Weight: 63.5036 kg

DRUGS (13)
  1. TYSABRI [Suspect]
     Indication: MULTIPLE SCLEROSIS
     Dosage: 300 MG;QM;IV
     Route: 042
     Dates: start: 20050101, end: 20070901
  2. GLIPIZIDE [Concomitant]
  3. METFORMIN HCL [Concomitant]
  4. GEMFIBROZIL [Concomitant]
  5. VIAGRA [Concomitant]
  6. PRIMROSE OIL [Concomitant]
  7. PYCANGENOL [Concomitant]
  8. GRAPE SEED EXTRACT [Concomitant]
  9. FLAX SEED OIL [Concomitant]
  10. OMEGA 3 [Concomitant]
  11. BORAGE OIL [Concomitant]
  12. COENZYME Q10 [Concomitant]
  13. MVI WITH MINERALS [Concomitant]

REACTIONS (3)
  - DYSURIA [None]
  - PAIN [None]
  - PROSTATOMEGALY [None]
